FAERS Safety Report 5522931-1 (Version None)
Quarter: 2007Q4

REPORT INFORMATION
  Report Type: 
  Country: None (occurrence: None)
  Receive Date: 20071116
  Receipt Date: 20071105
  Transmission Date: 20080405
  Serious: Yes (Other)
  Sender: FDA-Public Use
  Company Number: 430035M07USA

PATIENT
  Age: 74 Year
  Sex: Male

DRUGS (4)
  1. NOVANTRONE [Suspect]
     Dates: start: 20000310, end: 20000922
  2. ABIRATERONE ACETATE(ALL OTHER THERAPEUTIC PRODUCTS) [Suspect]
  3. ZOLADEX [Concomitant]
  4. ASPIRIN [Concomitant]

REACTIONS (5)
  - DILATATION VENTRICULAR [None]
  - DYSPNOEA EXERTIONAL [None]
  - EJECTION FRACTION DECREASED [None]
  - FLUID OVERLOAD [None]
  - OEDEMA [None]
